FAERS Safety Report 9197395 (Version 2)
Quarter: 2013Q1

REPORT INFORMATION
  Report Type: Spontaneous
  Country: US (occurrence: US)
  Receive Date: 20130328
  Receipt Date: 20130329
  Transmission Date: 20140127
  Serious: Yes (Death, Hospitalization)
  Sender: FDA-Public Use
  Company Number: US-GLAXOSMITHKLINE-A1017601A

PATIENT
  Age: 60 Year
  Sex: Male

DRUGS (1)
  1. FLOLAN [Suspect]
     Dosage: 11.68NGKM CONTINUOUS
     Route: 042
     Dates: start: 20130227

REACTIONS (4)
  - Hypoxia [Unknown]
  - Pneumonia [Unknown]
  - Fluid overload [Unknown]
  - Death [Fatal]
